FAERS Safety Report 12961668 (Version 1)
Quarter: 2016Q4

REPORT INFORMATION
  Report Type: Report from Study
  Country: None (occurrence: PT)
  Receive Date: 20161121
  Receipt Date: 20161121
  Transmission Date: 20170207
  Serious: Yes (Hospitalization)
  Sender: FDA-Public Use
  Company Number: PT-ABBVIE-16K-130-1782455-00

PATIENT
  Sex: Female

DRUGS (4)
  1. FLEXIBAN [Concomitant]
     Indication: MUSCLE CONTRACTURE
     Route: 048
  2. HUMIRA [Suspect]
     Active Substance: ADALIMUMAB
     Indication: AXIAL SPONDYLOARTHRITIS
     Route: 058
     Dates: start: 20160509, end: 20160509
  3. SALAZOPIRINA [Concomitant]
     Indication: AXIAL SPONDYLOARTHRITIS
     Route: 048
  4. VOLTAREN [Concomitant]
     Active Substance: DICLOFENAC SODIUM
     Indication: AXIAL SPONDYLOARTHRITIS
     Route: 048

REACTIONS (7)
  - Hypertension [Not Recovered/Not Resolved]
  - Sepsis [Recovered/Resolved]
  - White blood cell count increased [Recovered/Resolved]
  - Tachycardia [Recovered/Resolved]
  - C-reactive protein increased [Recovered/Resolved]
  - Arthritis [Unknown]
  - Drug ineffective [Unknown]

NARRATIVE: CASE EVENT DATE: 2016
